FAERS Safety Report 23411939 (Version 3)
Quarter: 2024Q1

REPORT INFORMATION
  Report Type: Spontaneous
  Country: DE (occurrence: DE)
  Receive Date: 20240117
  Receipt Date: 20240318
  Transmission Date: 20240409
  Serious: Yes (Life-Threatening, Hospitalization, Other)
  Sender: FDA-Public Use
  Company Number: DE-009507513-2401DEU007092

PATIENT
  Age: 69 Year
  Sex: Female
  Weight: 50 kg

DRUGS (12)
  1. KEYTRUDA [Suspect]
     Active Substance: PEMBROLIZUMAB
     Indication: Non-small cell lung cancer
     Dosage: 200 MILLIGRAM, Q3W
     Route: 042
     Dates: start: 20230612, end: 202309
  2. KEYTRUDA [Suspect]
     Active Substance: PEMBROLIZUMAB
     Dosage: 200 MILLIGRAM, Q3W
     Route: 042
     Dates: start: 20231207
  3. KEYTRUDA [Suspect]
     Active Substance: PEMBROLIZUMAB
     Dosage: 200 MILLIGRAM, Q3W
     Route: 042
     Dates: start: 20240114
  4. CARBOPLATIN [Suspect]
     Active Substance: CARBOPLATIN
     Dosage: UNK
     Dates: start: 20230612, end: 202309
  5. PACLITAXEL [Suspect]
     Active Substance: PACLITAXEL
     Dosage: UNK
     Dates: start: 20230612, end: 202309
  6. OMEPRAZOLE [Concomitant]
     Active Substance: OMEPRAZOLE
     Indication: Dyspepsia
     Dosage: 20 MILLIGRAM, QD
     Route: 048
  7. ASPIRIN [Concomitant]
     Active Substance: ASPIRIN
     Indication: Cerebral infarction
     Dosage: 100 MILLIGRAM, QD
     Route: 048
  8. PIROXICAM [Concomitant]
     Active Substance: PIROXICAM
     Indication: Chronic obstructive pulmonary disease
     Dosage: 2 DOSAGE FORM, QD
  9. ALBUTEROL [Concomitant]
     Active Substance: ALBUTEROL
     Indication: Chronic obstructive pulmonary disease
     Dosage: UNK UNK, PRN
  10. NEBIVOLOL [Concomitant]
     Active Substance: NEBIVOLOL
     Indication: Hypertension
     Dosage: UNK
     Route: 048
  11. RAMIPRIL [Concomitant]
     Active Substance: RAMIPRIL
     Indication: Hypertension
     Dosage: UNK
     Route: 048
  12. POLYETHYLENE GLYCOLS [Concomitant]
     Active Substance: POLYETHYLENE GLYCOLS
     Dosage: 1 BAG, PRN

REACTIONS (41)
  - Aphthous ulcer [Recovered/Resolved]
  - Fatigue [Recovered/Resolved]
  - Decreased appetite [Recovered/Resolved]
  - Blister [Recovered/Resolved]
  - Immune-mediated hypothyroidism [Recovered/Resolved]
  - Hyponatraemia [Recovered/Resolved]
  - General physical health deterioration [Not Recovered/Not Resolved]
  - Immune-mediated hypothyroidism [Unknown]
  - C-reactive protein increased [Unknown]
  - Immune-mediated lung disease [Unknown]
  - Pyrexia [Unknown]
  - Pneumonia [Unknown]
  - Pleural infection [Unknown]
  - Disturbance in attention [Unknown]
  - Cachexia [Unknown]
  - Arteriosclerosis coronary artery [Unknown]
  - Malignant neoplasm progression [Recovered/Resolved]
  - Bronchitis [Unknown]
  - Myopathy [Recovered/Resolved]
  - Hypokalaemia [Recovered/Resolved]
  - Inappropriate antidiuretic hormone secretion [Unknown]
  - Immune-mediated neuropathy [Unknown]
  - Immune-mediated myositis [Recovered/Resolved]
  - Gait inability [Recovered/Resolved]
  - Hyponatraemia [Recovered/Resolved]
  - Cardiomegaly [Unknown]
  - Pleurisy [Unknown]
  - Nausea [Recovered/Resolved]
  - Flushing [Recovered/Resolved]
  - Constipation [Unknown]
  - Aphasia [Unknown]
  - Aggression [Unknown]
  - Abnormal behaviour [Unknown]
  - Vitamin D deficiency [Unknown]
  - Depression [Unknown]
  - Periorbital oedema [Unknown]
  - Mucosal dryness [Unknown]
  - Abdominal tenderness [Unknown]
  - Bone pain [Unknown]
  - Hypomagnesaemia [Unknown]
  - Dysstasia [Recovered/Resolved]

NARRATIVE: CASE EVENT DATE: 20230101
